FAERS Safety Report 8997690 (Version 1)
Quarter: 2013Q1

REPORT INFORMATION
  Report Type: Report from Study
  Country: CH (occurrence: CH)
  Receive Date: 20130104
  Receipt Date: 20130104
  Transmission Date: 20140127
  Serious: Yes (Disabling, Other)
  Sender: FDA-Public Use
  Company Number: CH-UCBSA-074091

PATIENT
  Age: 36 Year
  Sex: Female

DRUGS (12)
  1. LEVETIRACETAM [Suspect]
     Indication: STATUS EPILEPTICUS
  2. VALPROIC ACID [Suspect]
     Indication: STATUS EPILEPTICUS
  3. LORAZEPAM [Suspect]
     Indication: STATUS EPILEPTICUS
  4. PHENYTOIN [Suspect]
     Indication: STATUS EPILEPTICUS
  5. MIDAZOLAM [Suspect]
     Indication: STATUS EPILEPTICUS
  6. THIOPENTAL [Suspect]
     Indication: STATUS EPILEPTICUS
  7. PROPOFOL [Suspect]
     Indication: STATUS EPILEPTICUS
  8. PHENOBARBITAL [Suspect]
     Indication: STATUS EPILEPTICUS
  9. CLOBAZAM [Suspect]
     Indication: STATUS EPILEPTICUS
  10. FELBAMATE [Suspect]
     Indication: STATUS EPILEPTICUS
  11. TOPIRAMATE [Suspect]
     Indication: STATUS EPILEPTICUS
  12. CYCLOPHOSPHAMIDE [Concomitant]

REACTIONS (3)
  - Cognitive disorder [Unknown]
  - Physical disability [Unknown]
  - Drug ineffective for unapproved indication [Unknown]
